FAERS Safety Report 6102514-5 (Version None)
Quarter: 2009Q1

REPORT INFORMATION
  Report Type: 
  Country: None (occurrence: None)
  Receive Date: 20090304
  Receipt Date: 20080721
  Transmission Date: 20090719
  Serious: No
  Sender: FDA-Public Use
  Company Number: A0737490A

PATIENT
  Age: 64 Year
  Sex: Female

DRUGS (7)
  1. REQUIP [Suspect]
     Indication: PARKINSON'S DISEASE
     Route: 048
     Dates: start: 20080701
  2. STALEVO 100 [Concomitant]
  3. SINEMET CR [Concomitant]
  4. UNKNOWN MEDICATION [Concomitant]
  5. XANAX [Concomitant]
  6. ZYRTEC [Concomitant]
  7. INDERAL [Concomitant]

REACTIONS (1)
  - DYSKINESIA [None]
